FAERS Safety Report 10377423 (Version 1)
Quarter: 2014Q3

REPORT INFORMATION
  Report Type: Spontaneous
  Country: US (occurrence: None)
  Receive Date: 20140811
  Receipt Date: 20140811
  Transmission Date: 20150326
  Serious: Yes (Hospitalization)
  Sender: FDA-Public Use
  Company Number: None

PATIENT
  Age: 80 Year
  Sex: Male
  Weight: 95.26 kg

DRUGS (1)
  1. IMBRUVICA [Suspect]
     Active Substance: IBRUTINIB
     Indication: CHRONIC LYMPHOCYTIC LEUKAEMIA
     Dosage: 3 TABLETS (420 MG)  QD  ORAL
     Route: 048
     Dates: start: 20140414, end: 20140806

REACTIONS (6)
  - Nerve compression [None]
  - Haematoma [None]
  - Swelling [None]
  - Discomfort [None]
  - Sensory loss [None]
  - Haemoglobin decreased [None]

NARRATIVE: CASE EVENT DATE: 20140806
